FAERS Safety Report 5663307-6 (Version None)
Quarter: 2008Q1

REPORT INFORMATION
  Report Type: 
  Country: None (occurrence: None)
  Receive Date: 20080313
  Receipt Date: 20080303
  Transmission Date: 20080703
  Serious: Yes (Death, Other)
  Sender: FDA-Public Use
  Company Number: US-KINGPHARMUSA00001-K200800271

PATIENT

DRUGS (62)
  1. ALTACE [Suspect]
     Indication: HYPERTENSION
     Dosage: 2.5 MG, QD
     Route: 048
     Dates: start: 20041007, end: 20041031
  2. TAPAZOLE [Suspect]
     Indication: HYPERTHYROIDISM
     Dosage: UNK, QD
     Route: 048
     Dates: start: 20041006, end: 20041105
  3. CLEXANE [Suspect]
     Indication: THROMBOSIS PROPHYLAXIS
     Dosage: 80 MG, QD
     Route: 058
     Dates: start: 20041011, end: 20041028
  4. LORAZEPAM [Suspect]
     Indication: SLEEP DISORDER
     Dosage: 1 TABLET, QD
     Route: 048
     Dates: start: 20041014, end: 20041014
  5. LORAZEPAM [Suspect]
     Dosage: 1 TABLET, QD
     Route: 048
     Dates: start: 20041030, end: 20041030
  6. BELOC-ZOK [Suspect]
     Indication: ACUTE MYOCARDIAL INFARCTION
     Dosage: 3 X1 TABLET, TID
     Route: 048
     Dates: start: 20041012, end: 20041031
  7. DISALUNIL [Suspect]
     Indication: HYPERTENSION
     Dosage: 25 MG, QD
     Route: 048
     Dates: start: 20041012, end: 20041031
  8. PANTOZOL /01263202/ [Suspect]
     Indication: PROPHYLAXIS
     Dosage: 40 MG, QD
     Route: 048
     Dates: start: 20041007, end: 20041031
  9. TORSEMIDE [Suspect]
     Indication: RENAL FAILURE
     Dosage: UNK, QD
     Route: 048
     Dates: start: 20041012, end: 20041031
  10. TORSEMIDE [Suspect]
     Dosage: UNK, QD
     Route: 048
     Dates: start: 20041102, end: 20041105
  11. IRENAT [Suspect]
     Indication: HYPERTHYROIDISM
     Dosage: UNK, QD
     Route: 048
     Dates: start: 20041006, end: 20041105
  12. ISCOVER [Suspect]
     Indication: THROMBOSIS PROPHYLAXIS
     Dosage: 75 MG, QD
     Route: 048
     Dates: start: 20041005, end: 20041107
  13. DIGITOXIN INJ [Suspect]
     Indication: CARDIAC FAILURE
     Route: 048
     Dates: start: 20041014, end: 20041027
  14. DIGITOXIN INJ [Suspect]
     Dosage: UNK, QD
     Route: 048
     Dates: start: 20041103
  15. MCP /00041901/ [Suspect]
     Indication: NAUSEA
     Dosage: 20 DROPS FIVE TIMES PER DAY
     Route: 048
     Dates: start: 20041023, end: 20041023
  16. MCP /00041901/ [Suspect]
     Dosage: 20 DROP 5 TIMES A DAY, QD
     Route: 048
     Dates: start: 20041025, end: 20041028
  17. ALLOPURINOL [Suspect]
     Indication: HYPERURICAEMIA
     Dosage: ONE TABLET, QD
     Route: 048
     Dates: start: 20041024, end: 20041102
  18. EUNERPAN [Suspect]
     Indication: SLEEP DISORDER
     Dosage: 1 ML, QD
     Route: 048
     Dates: start: 20041030, end: 20041031
  19. EUNERPAN [Suspect]
     Dosage: 1 ML, QD
     Route: 048
     Dates: start: 20041102, end: 20041107
  20. LOPERAMID [Suspect]
     Indication: DIARRHOEA
     Dosage: 4 MG, QD
     Route: 048
     Dates: start: 20041031, end: 20041031
  21. CARBIUM [Suspect]
     Indication: AGITATION
     Dosage: 2X1 TABLET, QD
     Route: 048
     Dates: start: 20041101, end: 20041102
  22. TAZOBAC /01173601/ [Concomitant]
     Indication: PNEUMONIA
     Dosage: 13.5 G, UNK
     Route: 042
     Dates: start: 20041007, end: 20041015
  23. PERFALGAN [Concomitant]
     Indication: PYREXIA
     Dosage: 1 G, UNK
     Route: 042
     Dates: start: 20041014, end: 20041021
  24. PERFALGAN [Concomitant]
     Dosage: 1 G, UNK
     Route: 042
     Dates: start: 20041021, end: 20041021
  25. RED BLOOD CELLS [Concomitant]
     Indication: HAEMOGLOBIN DECREASED
     Dosage: 2 BLOOD BOTTLES EVERYDAY CONCENTRATE
     Route: 042
     Dates: start: 20041004, end: 20041031
  26. SORTIS /01326101/ [Concomitant]
     Indication: HYPERCHOLESTEROLAEMIA
     Dosage: 40 MG, UNK
     Route: 048
     Dates: start: 20040729, end: 20041102
  27. ASPIRIN [Concomitant]
     Indication: THROMBOSIS PROPHYLAXIS
     Dosage: 100 MG, UNK
     Route: 048
     Dates: start: 20040729, end: 20041107
  28. LANTUS [Concomitant]
     Indication: DIABETES MELLITUS
     Dosage: 60/30 IU, UNK
     Route: 058
     Dates: start: 20040729, end: 20041110
  29. HUMALOG [Concomitant]
     Indication: DIABETES MELLITUS
     Dosage: 24-24-26 IU, UNK
     Route: 058
     Dates: start: 20040729, end: 20041110
  30. KALINOR /00031402/ [Concomitant]
     Dosage: 1 TABLET, QD
     Dates: start: 20041015, end: 20041020
  31. EFFERVESCENT POTASSIUM CHLOR [Concomitant]
     Indication: HYPOKALAEMIA
     Dosage: 1 TABLET, QD
     Route: 048
     Dates: start: 20041023, end: 20041025
  32. EFFERVESCENT POTASSIUM CHLOR [Concomitant]
     Dosage: 1 TABLET, QD
     Route: 048
     Dates: start: 20041102, end: 20041104
  33. EFFERVESCENT POTASSIUM CHLOR [Concomitant]
     Route: 048
  34. LENDROMIN [Concomitant]
     Indication: SLEEP DISORDER
     Dosage: .25 MG, UNK
     Route: 048
     Dates: start: 20041015, end: 20041024
  35. LENDROMIN [Concomitant]
     Dosage: .25 MG, UNK
     Route: 048
     Dates: start: 20041103, end: 20041103
  36. LENDROMIN [Concomitant]
     Dosage: .25 MG, UNK
     Route: 048
     Dates: start: 20041110, end: 20041110
  37. NOVALGIN  /00039501/ [Concomitant]
     Indication: PAIN
     Dosage: 20 DROP, UNK
     Route: 048
     Dates: start: 20041017, end: 20041017
  38. ROHYPNOL [Concomitant]
     Indication: AGITATION
     Dosage: 1 MG, UNK
     Route: 048
     Dates: start: 20041018, end: 20041018
  39. KLACID  /00984601/ [Concomitant]
     Indication: PNEUMONIA
     Dosage: 1250 MG, UNK
     Route: 048
     Dates: start: 20041018, end: 20041024
  40. MCP /00041901/ [Concomitant]
     Dosage: 1 AMPOULE, QD
     Route: 042
     Dates: start: 20041024, end: 20041025
  41. NATRIUMCHLORID [Concomitant]
     Indication: FLUID REPLACEMENT
     Dosage: 500 ML, UNK
     Route: 042
     Dates: start: 20041024, end: 20041027
  42. KALINOR                            /00031402/ [Concomitant]
     Indication: HYPOKALAEMIA
     Route: 048
     Dates: start: 20041025, end: 20041027
  43. KALINOR                            /00031402/ [Concomitant]
     Route: 048
     Dates: start: 20041101, end: 20041101
  44. K CL TAB [Concomitant]
     Indication: HYPOKALAEMIA
     Dosage: 40 MMOL, UNK
     Route: 042
     Dates: start: 20041027, end: 20041027
  45. K CL TAB [Concomitant]
     Dosage: 40 MMOL, UNK
     Route: 042
     Dates: start: 20041102, end: 20041104
  46. FUROSEMID /00032601/ [Concomitant]
     Indication: POLYURIA
     Dosage: 10 DRAM TABLETS, UNK
     Route: 048
     Dates: start: 20041101, end: 20041101
  47. RAMIPRIL COMP [Concomitant]
     Indication: HYPERTENSION
     Dosage: 5/25 HALF A TABLET, QD
     Route: 048
     Dates: start: 20041101, end: 20041102
  48. METOPROLOL TARTRATE [Concomitant]
     Indication: HYPERTENSION
     Dosage: 200 MG, UNK
     Route: 048
     Dates: start: 20041101, end: 20041107
  49. GLUCOSE [Concomitant]
     Indication: HYPOGLYCAEMIA
     Route: 042
     Dates: start: 20041102, end: 20041108
  50. FURESIS [Concomitant]
     Indication: POLYURIA
     Dosage: 40 MG, UNK
     Route: 042
     Dates: start: 20041102
  51. JONOSTERIL /00351401/ [Concomitant]
     Indication: FLUID REPLACEMENT
     Dosage: 1000-2000 ML, UNK
     Route: 042
     Dates: start: 20041102
  52. DIPIPERON [Concomitant]
     Indication: CONFUSIONAL STATE
     Dosage: 48 MG, UNK
     Route: 048
     Dates: start: 20041103, end: 20041104
  53. FERRO-SANOL DUODENAL [Concomitant]
     Dosage: 50 MG, UNK
     Route: 048
     Dates: start: 20041103, end: 20041107
  54. HALOPERIDOL [Concomitant]
     Indication: CONFUSIONAL STATE
     Dosage: 40 DROP, UNK
     Route: 048
     Dates: start: 20041104, end: 20041105
  55. FENISTIL [Concomitant]
     Indication: PRURITUS
     Dosage: 3 MG, UNK
     Route: 042
     Dates: start: 20041104, end: 20041107
  56. FENISTIL [Concomitant]
     Dosage: 4 MG, UNK
     Route: 042
     Dates: start: 20041105, end: 20051105
  57. PROTHAZIN [Concomitant]
     Indication: AGITATION
     Dosage: 2X1/2 AMPOULE, BID
     Route: 042
     Dates: start: 20041105, end: 20041108
  58. PREDNISOLUT /00016203/ [Concomitant]
     Indication: SWOLLEN TONGUE
     Dates: start: 20041105, end: 20041110
  59. UNACID /00903602/ [Concomitant]
     Indication: PAROTITIS
     Dosage: 3 G, UNK
     Route: 042
     Dates: start: 20041106, end: 20041106
  60. DIGITOXIN INJ [Concomitant]
     Dosage: 1/2 AMPOULE, QD
     Route: 042
     Dates: start: 20041106, end: 20041108
  61. MORPHINE [Concomitant]
     Indication: PAIN
     Dosage: UNK, BID
     Route: 042
     Dates: start: 20041106, end: 20041109
  62. DIFLUCAN [Concomitant]
     Dosage: UNK, QD
     Route: 042
     Dates: start: 20041106, end: 20041110

REACTIONS (10)
  - BLISTER [None]
  - CONJUNCTIVITIS [None]
  - LIP EROSION [None]
  - MOUTH ULCERATION [None]
  - NIKOLSKY'S SIGN [None]
  - OCULAR HYPERAEMIA [None]
  - PRURITUS [None]
  - SKIN REACTION [None]
  - STEVENS-JOHNSON SYNDROME [None]
  - SWOLLEN TONGUE [None]
